FAERS Safety Report 16737381 (Version 5)
Quarter: 2021Q1

REPORT INFORMATION
  Report Type: Spontaneous
  Country: US (occurrence: US)
  Receive Date: 20190823
  Receipt Date: 20210219
  Transmission Date: 20210419
  Serious: Yes (Other)
  Sender: FDA-Public Use
  Company Number: US-LUNDBECK-DKLU3002183

PATIENT
  Age: 57 Year
  Sex: Female

DRUGS (3)
  1. NORTHERA [Suspect]
     Active Substance: DROXIDOPA
     Indication: SYNCOPE
     Route: 048
     Dates: start: 20190801
  2. NORTHERA [Suspect]
     Active Substance: DROXIDOPA
     Indication: AUTONOMIC NEUROPATHY
     Route: 048
     Dates: start: 202101
  3. NORTHERA [Suspect]
     Active Substance: DROXIDOPA
     Indication: ORTHOSTATIC HYPOTENSION
     Dosage: SCHEDULE C
     Route: 048
     Dates: start: 20190712

REACTIONS (12)
  - Loss of consciousness [Unknown]
  - Fatigue [Unknown]
  - Palpitations [Unknown]
  - Blood pressure systolic increased [Unknown]
  - Dizziness [Unknown]
  - Asthenia [Unknown]
  - Dysuria [Unknown]
  - Nausea [Unknown]
  - Vision blurred [Unknown]
  - Hyperhidrosis [Unknown]
  - Chest pain [Unknown]
  - Headache [Unknown]

NARRATIVE: CASE EVENT DATE: 201908
